FAERS Safety Report 26125662 (Version 1)
Quarter: 2025Q4

REPORT INFORMATION
  Report Type: Spontaneous
  Country: US (occurrence: US)
  Receive Date: 20251205
  Receipt Date: 20251205
  Transmission Date: 20260117
  Serious: Yes (Hospitalization, Disabling)
  Sender: TORRENT PHARMA INC.
  Company Number: US-TORRENT-00014636

PATIENT
  Age: 80 Year
  Sex: Male

DRUGS (1)
  1. OLANZAPINE [Suspect]
     Active Substance: OLANZAPINE
     Indication: Insomnia
     Dosage: UNKNOWN
     Route: 065

REACTIONS (3)
  - Cognitive disorder [Recovering/Resolving]
  - Parkinsonism [Recovering/Resolving]
  - Catatonia [Recovering/Resolving]
